FAERS Safety Report 4471240-0 (Version None)
Quarter: 2004Q4

REPORT INFORMATION
  Report Type: 
  Country: None (occurrence: None)
  Receive Date: 20041011
  Receipt Date: 20041006
  Transmission Date: 20050328
  Serious: Yes (Hospitalization)
  Sender: FDA-Public Use
  Company Number: CA-MERCK-0410CAN00164

PATIENT
  Age: 50 Year
  Sex: Male

DRUGS (5)
  1. ASPIRIN [Concomitant]
     Route: 065
  2. VIOXX [Suspect]
     Indication: SURGERY
     Route: 048
     Dates: start: 19990101, end: 20010101
  3. VIOXX [Suspect]
     Route: 048
     Dates: start: 20010101
  4. VIOXX [Suspect]
     Indication: NECK INJURY
     Route: 048
     Dates: start: 19990101, end: 20010101
  5. VIOXX [Suspect]
     Route: 048
     Dates: start: 20010101

REACTIONS (5)
  - ATRIAL FIBRILLATION [None]
  - CHEST PAIN [None]
  - DIZZINESS [None]
  - PALPITATIONS [None]
  - SYNCOPE [None]
